FAERS Safety Report 5744044-6 (Version None)
Quarter: 2008Q2

REPORT INFORMATION
  Report Type: 
  Country: None (occurrence: None)
  Receive Date: 20080516
  Receipt Date: 20080516
  Transmission Date: 20081010
  Serious: Yes (Life-Threatening, Other)
  Sender: FDA-Public Use
  Company Number: None

PATIENT
  Age: 53 Year
  Sex: Male
  Weight: 117.9352 kg

DRUGS (1)
  1. SEROQUEL [Suspect]

REACTIONS (6)
  - DIABETES MELLITUS [None]
  - DIZZINESS [None]
  - HYPERHIDROSIS [None]
  - PARAESTHESIA [None]
  - TREMOR [None]
  - WEIGHT INCREASED [None]
